FAERS Safety Report 4808232-5 (Version None)
Quarter: 2005Q4

REPORT INFORMATION
  Report Type: 
  Country: None (occurrence: None)
  Receive Date: 20051021
  Receipt Date: 20051006
  Transmission Date: 20060501
  Serious: Yes (Other)
  Sender: FDA-Public Use
  Company Number: 12677

PATIENT
  Age: 67 Year
  Sex: Female
  Weight: 103 kg

DRUGS (3)
  1. AMIODARONE [Suspect]
     Indication: ATRIAL FIBRILLATION
     Dosage: 200 MG DAILY
  2. ATENOLOL [Concomitant]
  3. CARBIMAZOLE [Concomitant]

REACTIONS (3)
  - DRUG INEFFECTIVE [None]
  - PHOTOSENSITIVITY REACTION [None]
  - SKIN HYPERPIGMENTATION [None]
